FAERS Safety Report 18588227 (Version 1)
Quarter: 2020Q4

REPORT INFORMATION
  Report Type: Spontaneous
  Country: CR (occurrence: CR)
  Receive Date: 20201207
  Receipt Date: 20201207
  Transmission Date: 20210114
  Serious: Yes (Death, Other)
  Sender: FDA-Public Use
  Company Number: CR-009507513-2011CRI008253

PATIENT
  Age: 81 Year
  Sex: Male
  Weight: 64 kg

DRUGS (1)
  1. KEYTRUDA [Suspect]
     Active Substance: PEMBROLIZUMAB
     Indication: MALIGNANT MELANOMA
     Dosage: 200 MILLIGRAM, Q3W
     Route: 042
     Dates: start: 20200904, end: 20200925

REACTIONS (6)
  - Pneumonitis [Unknown]
  - Dyspnoea [Fatal]
  - Pneumonia [Unknown]
  - Lung infiltration [Fatal]
  - Immune-mediated adverse reaction [Unknown]
  - Pulmonary embolism [Unknown]

NARRATIVE: CASE EVENT DATE: 202009
